FAERS Safety Report 10553903 (Version 1)
Quarter: 2014Q4

REPORT INFORMATION
  Report Type: Spontaneous
  Country: US (occurrence: US)
  Receive Date: 20141030
  Receipt Date: 20141030
  Transmission Date: 20150529
  Serious: Yes (Hospitalization, Other)
  Sender: FDA-Public Use
  Company Number: US-ASTELLAS-2014US015906

PATIENT
  Age: 20 Year
  Sex: Male

DRUGS (2)
  1. PROGRAF [Suspect]
     Active Substance: TACROLIMUS\TACROLIMUS ANHYDROUS
     Indication: HEART TRANSPLANT
     Dosage: 1.5 MG, ONCE DAILY (1MG IN THE MORNING 0.5MG AT NIGHT)
     Route: 065
     Dates: start: 20141012
  2. PROGRAF [Suspect]
     Active Substance: TACROLIMUS\TACROLIMUS ANHYDROUS
     Dosage: UNK UNK, UNKNOWN FREQ.
     Route: 065
     Dates: end: 201403

REACTIONS (5)
  - Blood urea increased [Unknown]
  - Renal disorder [Unknown]
  - Glomerular filtration rate abnormal [Unknown]
  - Investigation [Unknown]
  - Heart transplant [Unknown]
